FAERS Safety Report 9813615 (Version 1)
Quarter: 2014Q1

REPORT INFORMATION
  Report Type: Spontaneous
  Country: US (occurrence: None)
  Receive Date: 20140109
  Receipt Date: 20140109
  Transmission Date: 20141002
  Serious: Yes (Disabling)
  Sender: FDA-Public Use
  Company Number: None

PATIENT
  Age: 61 Year
  Sex: Female
  Weight: 51.71 kg

DRUGS (1)
  1. GENTAMICIN [Suspect]
     Indication: PSEUDOMONAS INFECTION
     Dosage: 120MG  Q 12 HOURS IVPB
     Route: 042
     Dates: start: 20130720, end: 20130803

REACTIONS (1)
  - Vestibular disorder [None]
